APPROVED DRUG PRODUCT: IMITREX
Active Ingredient: SUMATRIPTAN SUCCINATE
Strength: EQ 6MG BASE/0.5ML (EQ 12MG BASE/ML) **Federal Register determination that product was not discontinued or withdrawn for safety or effectiveness reasons**
Dosage Form/Route: INJECTABLE;SUBCUTANEOUS
Application: N020080 | Product #001
Applicant: GLAXOSMITHKLINE
Approved: Dec 28, 1992 | RLD: Yes | RS: No | Type: DISCN